FAERS Safety Report 9817375 (Version 1)
Quarter: 2014Q1

REPORT INFORMATION
  Report Type: Spontaneous
  Country: FR (occurrence: FR)
  Receive Date: 20140115
  Receipt Date: 20140115
  Transmission Date: 20141002
  Serious: Yes (Hospitalization)
  Sender: FDA-Public Use
  Company Number: FR-ASTRAZENECA-2014SE02165

PATIENT
  Age: 68 Year
  Sex: Male

DRUGS (7)
  1. XEROQUEL [Suspect]
     Indication: BIPOLAR DISORDER
     Route: 048
     Dates: end: 20131213
  2. XEROQUEL [Suspect]
     Indication: BIPOLAR DISORDER
     Route: 048
     Dates: start: 20131213
  3. DEPAMIDE [Suspect]
     Indication: BIPOLAR DISORDER
     Route: 048
     Dates: start: 20131207, end: 20131213
  4. SEROPLEX [Concomitant]
     Route: 048
  5. TERALITHE [Concomitant]
     Route: 048
  6. TEMESTA [Concomitant]
     Route: 048
  7. PERINDOPRIL [Concomitant]
     Route: 048

REACTIONS (7)
  - Asterixis [Recovered/Resolved]
  - Sleep phase rhythm disturbance [Recovered/Resolved]
  - Psychomotor retardation [Recovered/Resolved]
  - Ataxia [Recovered/Resolved]
  - Hyperammonaemia [Recovered/Resolved]
  - Electroencephalogram abnormal [Unknown]
  - Somnolence [Recovered/Resolved]
